FAERS Safety Report 9285842 (Version 1)
Quarter: 2013Q2

REPORT INFORMATION
  Report Type: Spontaneous
  Country: US (occurrence: US)
  Receive Date: 20130513
  Receipt Date: 20130513
  Transmission Date: 20140414
  Serious: Yes (Other)
  Sender: FDA-Public Use
  Company Number: US-B.I. PHARMACEUTICALS,INC./RIDGEFIELD-2013-BI-12248BP

PATIENT
  Age: 55 Year
  Sex: Female

DRUGS (1)
  1. MIRAPEX [Suspect]
     Dosage: 1.5 MG
     Route: 048
     Dates: start: 20121203

REACTIONS (2)
  - Convulsion [Not Recovered/Not Resolved]
  - Burns third degree [Not Recovered/Not Resolved]
